FAERS Safety Report 9694944 (Version 1)
Quarter: 2013Q4

REPORT INFORMATION
  Report Type: Spontaneous
  Country: US (occurrence: US)
  Receive Date: 20131119
  Receipt Date: 20131119
  Transmission Date: 20140711
  Serious: No
  Sender: FDA-Public Use
  Company Number: US-PFIZER INC-2013325773

PATIENT
  Age: 61 Year
  Sex: Male
  Weight: 106.58 kg

DRUGS (2)
  1. NEURONTIN [Suspect]
     Indication: NEURALGIA
     Dosage: 800 MG, 4X/DAY
     Route: 048
     Dates: start: 201305, end: 2013
  2. NEURONTIN [Suspect]
     Indication: NEUROPATHY PERIPHERAL

REACTIONS (3)
  - Off label use [Unknown]
  - Drug ineffective for unapproved indication [Unknown]
  - Weight increased [Unknown]
